FAERS Safety Report 4942728-0 (Version None)
Quarter: 2006Q1

REPORT INFORMATION
  Report Type: 
  Country: None (occurrence: None)
  Receive Date: 20060314
  Receipt Date: 20060113
  Transmission Date: 20060701
  Serious: Yes (Other)
  Sender: FDA-Public Use
  Company Number: PHNU2006DE00539

PATIENT
  Age: 62 Year
  Sex: Male

DRUGS (3)
  1. ZOMETA [Suspect]
     Indication: METASTASES TO BONE
     Dosage: 4 MG, QMO
     Route: 042
     Dates: start: 20021029, end: 20060126
  2. TRENANTONE [Concomitant]
     Indication: PROSTATE CANCER
     Dosage: UNK, Q3MO
     Route: 058
     Dates: start: 20030807
  3. CASODEX [Concomitant]
     Indication: PROSTATE CANCER
     Dosage: 50 MG, QD
     Route: 048
     Dates: start: 20031216

REACTIONS (4)
  - FAILURE OF IMPLANT [None]
  - OSTEITIS [None]
  - OSTEONECROSIS [None]
  - WOUND DRAINAGE [None]
